FAERS Safety Report 7875110-7 (Version None)
Quarter: 2011Q4

REPORT INFORMATION
  Report Type: 
  Country: None (occurrence: None)
  Receive Date: 20111031
  Receipt Date: 20111019
  Transmission Date: 20120403
  Serious: Yes (Hospitalization)
  Sender: FDA-Public Use
  Company Number: US-BIOGENIDEC-2010BI039621

PATIENT
  Age: 68 Year
  Sex: Female

DRUGS (3)
  1. AVONEX [Suspect]
     Indication: MULTIPLE SCLEROSIS
     Route: 030
     Dates: start: 20101101
  2. AVONEX [Suspect]
     Route: 030
     Dates: start: 20000324, end: 20080501
  3. AVONEX [Suspect]
     Route: 030
     Dates: start: 20080701, end: 20101013

REACTIONS (3)
  - ARTHRITIS [None]
  - FALL [None]
  - ARTHRALGIA [None]
